FAERS Safety Report 8007870-9 (Version None)
Quarter: 2011Q4

REPORT INFORMATION
  Report Type: 
  Country: None (occurrence: None)
  Receive Date: 20111227
  Receipt Date: 20111215
  Transmission Date: 20120403
  Serious: Yes (Other)
  Sender: FDA-Public Use
  Company Number: IT-PFIZER INC-2011305972

PATIENT
  Age: 19 Year
  Sex: Male
  Weight: 76 kg

DRUGS (1)
  1. CRIZOTINIB [Suspect]
     Indication: NON-HODGKIN'S LYMPHOMA
     Dosage: 250 MG, 2X/DAY
     Route: 048
     Dates: start: 20111104

REACTIONS (1)
  - BLOOD CREATINE PHOSPHOKINASE INCREASED [None]
